FAERS Safety Report 6571919-0 (Version None)
Quarter: 2010Q1

REPORT INFORMATION
  Report Type: 
  Country: None (occurrence: None)
  Receive Date: 20100205
  Receipt Date: 20100121
  Transmission Date: 20100710
  Serious: Yes (Hospitalization)
  Sender: FDA-Public Use
  Company Number: ES-ROCHE-680757

PATIENT
  Sex: Male
  Weight: 51.7 kg

DRUGS (7)
  1. CAPECITABINE [Suspect]
     Dosage: FREQUENCY REPORTED: 12 H, DAYS 1 - 21, LAST DOSE PRIOR TO SAE: 08 JANUARY 2009.
     Route: 048
     Dates: start: 20090821, end: 20100112
  2. DOCETAXEL [Suspect]
     Dosage: FORM : INFUSION, LAST DOSE PRIOR TO SAE: 09 DECEMBER 2009.
     Route: 042
     Dates: start: 20090821
  3. OXALIPLATIN [Suspect]
     Dosage: FORM: INFUSION, THE LAST DOSE PRIOR TO SAE: 16 JANUARY 2010.
     Route: 042
     Dates: start: 20090821, end: 20100116
  4. OCTREOTIDE ACETATE [Concomitant]
     Dosage: TOTAL DAILY DOSE: 1 CAMP/12 H
     Dates: start: 20090811
  5. OMEPRAZOLE [Concomitant]
     Dates: start: 20090811
  6. FERRUM [Concomitant]
     Dosage: TOTAL DAILY DOSE: 1 CAMP/24 H, DRUG REPORTED: ORAL FERRUM.
     Route: 048
     Dates: start: 20090811
  7. DALTEPARIN [Concomitant]
     Dosage: DRUG REPORTED: DALTEPARINE.
     Dates: start: 20091230, end: 20100107

REACTIONS (1)
  - CEREBROVASCULAR ACCIDENT [None]
